FAERS Safety Report 14663205 (Version 1)
Quarter: 2018Q1

REPORT INFORMATION
  Report Type: Spontaneous
  Country: GB (occurrence: GB)
  Receive Date: 20180321
  Receipt Date: 20180321
  Transmission Date: 20180509
  Serious: Yes (Other)
  Sender: FDA-Public Use
  Company Number: GB-TORRENT-00016257

PATIENT
  Age: 37 Year
  Sex: Female

DRUGS (2)
  1. DULOXETINE. [Suspect]
     Active Substance: DULOXETINE
     Indication: TRIGEMINAL NEURALGIA
  2. NAPROXEN. [Suspect]
     Active Substance: NAPROXEN
     Indication: TRIGEMINAL NEURALGIA

REACTIONS (6)
  - Exposure during pregnancy [Unknown]
  - Blood urea increased [Unknown]
  - Off label use [Unknown]
  - Abdominal pain [Unknown]
  - Anaemia [Unknown]
  - Contraindicated product administered [Unknown]

NARRATIVE: CASE EVENT DATE: 20171227
